FAERS Safety Report 10215617 (Version 1)
Quarter: 2014Q2

REPORT INFORMATION
  Report Type: Spontaneous
  Country: US (occurrence: US)
  Receive Date: 20140604
  Receipt Date: 20140604
  Transmission Date: 20141212
  Serious: Yes (Other)
  Sender: FDA-Public Use
  Company Number: US-BRISTOL-MYERS SQUIBB COMPANY-20855359

PATIENT
  Age: 75 Year
  Sex: Female
  Weight: 96.14 kg

DRUGS (1)
  1. ELIQUIS [Suspect]
     Indication: CEREBROVASCULAR ACCIDENT PROPHYLAXIS
     Dosage: LOT#: 3 ^B OR 8^ 76225A
     Dates: start: 201401

REACTIONS (3)
  - Ingrowing nail [Unknown]
  - Nail operation [Unknown]
  - Nail bed bleeding [Unknown]
